FAERS Safety Report 7920195-2 (Version None)
Quarter: 2011Q4

REPORT INFORMATION
  Report Type: 
  Country: None (occurrence: None)
  Receive Date: 20111117
  Receipt Date: 20111108
  Transmission Date: 20120403
  Serious: Yes (Other)
  Sender: FDA-Public Use
  Company Number: JP-PFIZER INC-2011125249

PATIENT
  Age: 73 Year
  Sex: Female
  Weight: 59.2 kg

DRUGS (4)
  1. CELECOXIB [Suspect]
     Indication: RHEUMATOID ARTHRITIS
     Dosage: 100 MG, 2X/DAY
     Route: 048
     Dates: start: 20110202, end: 20110601
  2. PREDNISOLONE [Concomitant]
     Dosage: UNK
     Route: 048
     Dates: start: 20110202, end: 20110601
  3. RHEUMATREX [Concomitant]
     Route: 048
  4. FOLIC ACID [Concomitant]

REACTIONS (1)
  - PROTEINURIA [None]
